FAERS Safety Report 11042819 (Version 1)
Quarter: 2015Q2

REPORT INFORMATION
  Report Type: Spontaneous
  Country: IT (occurrence: IT)
  Receive Date: 20150417
  Receipt Date: 20150417
  Transmission Date: 20150821
  Serious: Yes (Hospitalization)
  Sender: FDA-Public Use
  Company Number: IT-ROCHE-1564434

PATIENT
  Age: 79 Year
  Sex: Female

DRUGS (6)
  1. FUROSEMIDE. [Concomitant]
     Active Substance: FUROSEMIDE
  2. FOSTER (ITALY) [Concomitant]
     Dosage: 100 MCG/6 MCG PER ACTUATION OF PRESSURISED SOLN
     Route: 045
  3. OMEPRAZOLE. [Concomitant]
     Active Substance: OMEPRAZOLE
  4. ROCEFIN [Suspect]
     Active Substance: CEFTRIAXONE SODIUM
     Indication: PNEUMONITIS
     Dosage: 1 G/3.5 ML POWDER AND SOLUTION FOR SOLUTION FOR INJECTION
     Route: 030
     Dates: start: 20150320, end: 20150328
  5. CARVEDILOL. [Concomitant]
     Active Substance: CARVEDILOL
     Route: 065
  6. CARDIOASPIRIN [Concomitant]
     Active Substance: ASPIRIN
     Dosage: 100 MG GASTRO-RESISTANT TABLETS 30 TABLETS
     Route: 048

REACTIONS (2)
  - Hypokalaemia [Recovering/Resolving]
  - Clostridium colitis [Recovering/Resolving]

NARRATIVE: CASE EVENT DATE: 20150327
